FAERS Safety Report 11437861 (Version 2)
Quarter: 2015Q3

REPORT INFORMATION
  Report Type: Spontaneous
  Country: US (occurrence: US)
  Receive Date: 20150831
  Receipt Date: 20150910
  Transmission Date: 20151125
  Serious: No
  Sender: FDA-Public Use
  Company Number: US-PFIZER INC-2015285958

PATIENT
  Age: 64 Year
  Sex: Female
  Weight: 93 kg

DRUGS (10)
  1. AZITHROMYCIN [Suspect]
     Active Substance: AZITHROMYCIN ANHYDROUS
     Indication: BRONCHITIS
     Dosage: UNK (FIVE DAILY DOSES)
     Route: 048
  2. AZITHROMYCIN [Suspect]
     Active Substance: AZITHROMYCIN ANHYDROUS
     Indication: SINUSITIS
  3. REQUIP [Concomitant]
     Active Substance: ROPINIROLE HYDROCHLORIDE
     Indication: RESTLESS LEGS SYNDROME
     Dosage: 8 MG, 1X/DAY (4MG 2 TABLETS AT BEDTIME)
  4. ENALAPRIL MALEATE. [Concomitant]
     Active Substance: ENALAPRIL MALEATE
     Indication: BLOOD PRESSURE MEASUREMENT
     Dosage: 5 MG, 2X/DAY
  5. COUMADIN [Suspect]
     Active Substance: WARFARIN SODIUM
     Dosage: UNK
  6. RIFAMYCIN [Suspect]
     Active Substance: RIFAMYCIN
     Indication: BRONCHITIS
     Dosage: UNK (FIVE DAILY DOSES)
  7. PROTONIX [Concomitant]
     Active Substance: PANTOPRAZOLE SODIUM
     Indication: ABDOMINAL DISCOMFORT
     Dosage: 200 MG, 1X/DAY
  8. AZITHROMYCIN [Suspect]
     Active Substance: AZITHROMYCIN ANHYDROUS
     Indication: NASAL DISORDER
     Dosage: 250MG (250MG 2 TABLETS BY MOUTH FIRST DAY THEN 1 TABLET FOR 4 DAY TOOK FOR 5 DAYS TOTAL)
     Route: 048
     Dates: start: 201508, end: 201508
  9. ENALAPRIL [Concomitant]
     Active Substance: ENALAPRIL
     Indication: CARDIAC DISORDER
     Dosage: UNK
  10. OXYGEN. [Concomitant]
     Active Substance: OXYGEN
     Dosage: UNK

REACTIONS (2)
  - Drug ineffective [Unknown]
  - Therapeutic response unexpected [Not Recovered/Not Resolved]
